FAERS Safety Report 12719297 (Version 1)
Quarter: 2016Q3

REPORT INFORMATION
  Report Type: Spontaneous
  Country: US (occurrence: US)
  Receive Date: 20160907
  Receipt Date: 20160907
  Transmission Date: 20161109
  Serious: Yes (Hospitalization)
  Sender: FDA-Public Use
  Company Number: US-TAKEDA-2016TUS015613

PATIENT
  Age: 37 Year
  Sex: Female
  Weight: 90.25 kg

DRUGS (1)
  1. TRINTELLIX [Suspect]
     Active Substance: VORTIOXETINE HYDROBROMIDE
     Indication: OBSESSIVE-COMPULSIVE DISORDER
     Dosage: 10 MG, QD
     Route: 048
     Dates: start: 201608, end: 201608

REACTIONS (7)
  - Feeling abnormal [Recovered/Resolved]
  - Memory impairment [Recovered/Resolved]
  - Heart rate increased [Recovered/Resolved]
  - Off label use [Recovered/Resolved]
  - Daydreaming [Recovered/Resolved]
  - Blood pressure increased [Recovered/Resolved]
  - Hospitalisation [Unknown]

NARRATIVE: CASE EVENT DATE: 201608
